FAERS Safety Report 4592200-5 (Version None)
Quarter: 2005Q1

REPORT INFORMATION
  Report Type: 
  Country: None (occurrence: None)
  Receive Date: 20050228
  Receipt Date: 20050217
  Transmission Date: 20050727
  Serious: Yes (Hospitalization)
  Sender: FDA-Public Use
  Company Number: FR-JNJFOC-20050204753

PATIENT
  Age: 25 Year
  Sex: Female

DRUGS (6)
  1. REMICADE [Suspect]
     Indication: ANKYLOSING SPONDYLITIS
     Route: 042
  2. KETOPROFEN [Concomitant]
     Route: 065
  3. CORTANCYL [Concomitant]
     Route: 065
  4. FOLIC ACID [Concomitant]
     Route: 065
  5. FELDENE [Concomitant]
     Route: 065
  6. METHOTREXATE [Concomitant]
     Route: 065

REACTIONS (1)
  - KERATITIS [None]
